FAERS Safety Report 19932727 (Version 1)
Quarter: 2021Q4

REPORT INFORMATION
  Report Type: Spontaneous
  Country: US (occurrence: US)
  Receive Date: 20211008
  Receipt Date: 20211008
  Transmission Date: 20220304
  Serious: Yes (Hospitalization)
  Sender: FDA-Public Use
  Company Number: US-ACCORD-241030

PATIENT
  Age: 21 Month
  Sex: Female

DRUGS (1)
  1. CLONAZEPAM [Suspect]
     Active Substance: CLONAZEPAM
     Indication: Product used for unknown indication
     Route: 048

REACTIONS (4)
  - Ataxia [Recovered/Resolved]
  - Confusional state [Recovered/Resolved]
  - Atelectasis [Recovered/Resolved]
  - Accidental exposure to product by child [Unknown]
